FAERS Safety Report 7389845-6 (Version None)
Quarter: 2011Q2

REPORT INFORMATION
  Report Type: 
  Country: None (occurrence: None)
  Receive Date: 20110401
  Receipt Date: 20101021
  Transmission Date: 20111010
  Serious: Yes (Hospitalization)
  Sender: FDA-Public Use
  Company Number: US-BAYER-201018978NA

PATIENT
  Sex: Female
  Weight: 81.818 kg

DRUGS (13)
  1. YAZ [Suspect]
     Indication: PRODUCT USED FOR UNKNOWN INDICATION
     Route: 048
     Dates: start: 20080201, end: 20090429
  2. TRAMADOL [Concomitant]
     Indication: PAIN
     Dates: start: 19990101
  3. ORAL CONTRACEPTIVE NOS [Concomitant]
     Dates: start: 19760101, end: 19880101
  4. IUD NOS [Concomitant]
     Dates: start: 19800101
  5. PROPOXYPHENE HYDROCHLORIDE W/PARACETAMOL [Concomitant]
     Route: 048
  6. YASMIN [Suspect]
     Indication: GASTROOESOPHAGEAL REFLUX DISEASE
     Dosage: UNK
     Route: 048
     Dates: start: 20080128
  7. TRIAM [Concomitant]
     Indication: FLUID RETENTION
  8. UNCODEABLE ^UNCLASSIFIABLE^ [Concomitant]
     Route: 048
  9. ASCORBIC ACID [Concomitant]
  10. IBUPROFEN [Concomitant]
  11. OMEPRAZOLE [Concomitant]
     Indication: GASTROOESOPHAGEAL REFLUX DISEASE
     Dates: start: 19990101
  12. UNCODEABLE ^UNCLASSIFIABLE^ [Concomitant]
     Dates: start: 20080201, end: 20080401
  13. ANTIBIOTICS [Concomitant]

REACTIONS (3)
  - PAIN [None]
  - PULMONARY EMBOLISM [None]
  - THROMBOSIS [None]
